FAERS Safety Report 8362872-8 (Version None)
Quarter: 2012Q2

REPORT INFORMATION
  Report Type: 
  Country: None (occurrence: None)
  Receive Date: 20120514
  Receipt Date: 20120514
  Transmission Date: 20120825
  Serious: Yes (Other)
  Sender: FDA-Public Use
  Company Number: None

PATIENT
  Age: 65 Year
  Sex: Female
  Weight: 76.2043 kg

DRUGS (1)
  1. SODIUM CHLORIDE INJ [Suspect]
     Indication: SPIDER VEIN
     Dates: start: 20120321, end: 20120321

REACTIONS (3)
  - ERYTHEMA [None]
  - IMPAIRED HEALING [None]
  - BLISTER [None]
